FAERS Safety Report 14678361 (Version 2)
Quarter: 2018Q1

REPORT INFORMATION
  Report Type: Spontaneous
  Country: US (occurrence: US)
  Receive Date: 20180326
  Receipt Date: 20180328
  Transmission Date: 20180509
  Serious: Yes (Hospitalization, Other)
  Sender: FDA-Public Use
  Company Number: US-ROCHE-2094710

PATIENT
  Age: 31 Year
  Sex: Male
  Weight: 106.69 kg

DRUGS (3)
  1. EFFEXOR [Concomitant]
     Active Substance: VENLAFAXINE HYDROCHLORIDE
     Dosage: FOR 7 YEARS
     Route: 065
  2. BACLOFEN. [Concomitant]
     Active Substance: BACLOFEN
     Indication: MUSCLE SPASMS
     Dosage: HELPS SOME ;ONGOING: YES
     Route: 048
     Dates: start: 2018
  3. KLONOPIN [Suspect]
     Active Substance: CLONAZEPAM
     Indication: ANXIETY
     Route: 048
     Dates: start: 2014, end: 2017

REACTIONS (21)
  - Gallbladder disorder [Not Recovered/Not Resolved]
  - Appendix disorder [Not Recovered/Not Resolved]
  - Malaise [Not Recovered/Not Resolved]
  - Back pain [Not Recovered/Not Resolved]
  - Pain [Not Recovered/Not Resolved]
  - Panic attack [Recovering/Resolving]
  - Feeling hot [Not Recovered/Not Resolved]
  - Tinnitus [Not Recovered/Not Resolved]
  - Drug dependence [Recovered/Resolved]
  - Neck pain [Not Recovered/Not Resolved]
  - Temporomandibular joint syndrome [Not Recovered/Not Resolved]
  - Ear pain [Not Recovered/Not Resolved]
  - Anxiety [Recovering/Resolving]
  - Headache [Not Recovered/Not Resolved]
  - Influenza [Not Recovered/Not Resolved]
  - Feeling cold [Not Recovered/Not Resolved]
  - Abdominal pain upper [Recovering/Resolving]
  - Irritable bowel syndrome [Recovered/Resolved]
  - Hepatomegaly [Not Recovered/Not Resolved]
  - Depression [Not Recovered/Not Resolved]
  - Drug withdrawal syndrome [Not Recovered/Not Resolved]

NARRATIVE: CASE EVENT DATE: 2014
